FAERS Safety Report 8117702-6 (Version None)
Quarter: 2012Q1

REPORT INFORMATION
  Report Type: 
  Country: None (occurrence: None)
  Receive Date: 20120203
  Receipt Date: 20120203
  Transmission Date: 20120608
  Serious: Yes (Hospitalization)
  Sender: FDA-Public Use
  Company Number: None

PATIENT
  Age: 77 Year
  Sex: Male
  Weight: 59.4 kg

DRUGS (1)
  1. METHADONE HCL [Suspect]
     Indication: PAIN
     Dosage: 15 MH TID PO
     Route: 048
     Dates: start: 20111001, end: 20111007

REACTIONS (3)
  - BREAKTHROUGH PAIN [None]
  - HYPOTENSION [None]
  - MENTAL STATUS CHANGES [None]
